FAERS Safety Report 5527877-0 (Version None)
Quarter: 2007Q4

REPORT INFORMATION
  Report Type: 
  Country: None (occurrence: None)
  Receive Date: 20071126
  Receipt Date: 20071126
  Transmission Date: 20080405
  Serious: Yes (Other)
  Sender: FDA-Public Use
  Company Number: None

PATIENT
  Age: 21 Year
  Sex: Female
  Weight: 54.4316 kg

DRUGS (3)
  1. THERAFLU [Suspect]
     Indication: NASOPHARYNGITIS
     Dosage: 1 PACKET HOT BEVERAGE
     Dates: start: 19981115, end: 19981115
  2. THERAFLU [Suspect]
     Indication: PNEUMONIA
     Dosage: 1 PACKET HOT BEVERAGE
     Dates: start: 19981115, end: 19981115
  3. PRESCRIPTION ANTIBIOTICS [Concomitant]

REACTIONS (4)
  - AGITATION [None]
  - ANXIETY [None]
  - HALLUCINATION [None]
  - PANIC ATTACK [None]
